FAERS Safety Report 7300671-6 (Version None)
Quarter: 2011Q1

REPORT INFORMATION
  Report Type: 
  Country: None (occurrence: None)
  Receive Date: 20110207
  Receipt Date: 20110128
  Transmission Date: 20110831
  Serious: Yes (Life-Threatening, Hospitalization)
  Sender: FDA-Public Use
  Company Number: OMPQ-NO-1102S-0136

PATIENT
  Age: 44 Year
  Sex: Male
  Weight: 70 kg

DRUGS (1)
  1. OMNIPAQUE 70 [Suspect]
     Indication: PRODUCT USED FOR UNKNOWN INDICATION
     Dosage: 100 ML, SINGLE DOSE
     Dates: start: 20110113, end: 20110113

REACTIONS (4)
  - PYREXIA [None]
  - MYOCARDIAL INFARCTION [None]
  - TREMOR [None]
  - ANAPHYLACTOID SHOCK [None]
